FAERS Safety Report 8206418-3 (Version None)
Quarter: 2012Q1

REPORT INFORMATION
  Report Type: 
  Country: None (occurrence: None)
  Receive Date: 20120313
  Receipt Date: 20120308
  Transmission Date: 20120608
  Serious: Yes (Hospitalization, Other)
  Sender: FDA-Public Use
  Company Number: PHHY2012FR021534

PATIENT
  Age: 79 Year
  Sex: Male

DRUGS (9)
  1. ALLOPURINOL [Concomitant]
     Dosage: 200 MG, LONG-STANDING TREATMENT
  2. PREVISCAN [Concomitant]
     Dosage: UNK,  2 YEARS
  3. AVODART [Concomitant]
     Dosage: UNK, FOR 1 YEAR
  4. VALSARTAN [Suspect]
     Dosage: 80 MG
     Dates: start: 20120116
  5. AMLODIPINE BESYLATE [Suspect]
     Dosage: 5 MG
     Dates: start: 20120116
  6. LEVOTHYROXINE SODIUM [Concomitant]
     Dosage: UNK, LONG-STANDING TREATMENT
  7. EXFORGE [Suspect]
     Dosage: 1 DF, QD (80 MG VALS AND 5 MG AMLO)
  8. FLECAINIDE ACETATE [Concomitant]
     Dosage: UNK,  2 YEARS
  9. EXFORGE [Suspect]
     Indication: HYPERTENSION
     Dosage: 1 DF, QD (80 MG VALS AND 5 MG AMLO)

REACTIONS (2)
  - ARTERIAL STENOSIS [None]
  - ARTERIOSCLEROSIS CORONARY ARTERY [None]
